FAERS Safety Report 23106863 (Version 1)
Quarter: 2023Q4

REPORT INFORMATION
  Report Type: Spontaneous
  Country: FR (occurrence: FR)
  Receive Date: 20231026
  Receipt Date: 20231026
  Transmission Date: 20240110
  Serious: Yes (Hospitalization)
  Sender: FDA-Public Use
  Company Number: FR-ROCHE-3007881

PATIENT
  Age: 81 Year
  Sex: Male
  Weight: 82.5 kg

DRUGS (13)
  1. NINTEDANIB ESYLATE [Suspect]
     Active Substance: NINTEDANIB ESYLATE
     Indication: Idiopathic pulmonary fibrosis
     Dosage: START DATE OF MOST RECENT DOSE OF STUDY DRUG PRIOR TO SAE IS 19/JAN/2022
     Route: 048
     Dates: start: 20161223
  2. PIRFENIDONE [Suspect]
     Active Substance: PIRFENIDONE
     Indication: Idiopathic pulmonary fibrosis
     Dosage: 801.000MG
     Route: 048
     Dates: start: 201509
  3. AMLODIPINE [Concomitant]
     Active Substance: AMLODIPINE BESYLATE
     Indication: Hypertension
     Dosage: 5.000MG QD
     Route: 065
  4. BISOPROLOL [Concomitant]
     Active Substance: BISOPROLOL\BISOPROLOL FUMARATE
     Indication: Product used for unknown indication
     Dosage: 7.5 MG, QD
     Route: 065
  5. HYDROCHLOROTHIAZIDE\RAMIPRIL [Concomitant]
     Active Substance: HYDROCHLOROTHIAZIDE\RAMIPRIL
     Indication: Hypertension
     Dosage: 5.000MG QD
     Route: 065
  6. WARFARIN SODIUM [Concomitant]
     Active Substance: WARFARIN SODIUM
     Indication: Hypertension
     Dosage: 2.500MG QD
     Route: 065
  7. NITROGLYCERIN [Concomitant]
     Active Substance: NITROGLYCERIN
     Indication: Product used for unknown indication
     Dosage: 5.000MG QD
     Route: 065
  8. PRM 151 [Concomitant]
     Dosage: START DATE OF MOST RECENT DOSE OF PRM-151 (RECOMBINANT HUMAN PENTRAXIN-2) PRIOR TO SERIOUS ADVERSE E
     Route: 065
     Dates: start: 20211213
  9. PRM 151 [Concomitant]
     Indication: Idiopathic pulmonary fibrosis
     Dosage: UNK
     Route: 065
  10. PRM 151 [Concomitant]
     Dosage: UNK
     Route: 065
  11. PRM 151 [Concomitant]
     Dosage: UNK
     Route: 065
  12. PRM 151 [Concomitant]
     Dosage: UNK
     Route: 065
  13. RAMIPRIL [Concomitant]
     Active Substance: RAMIPRIL
     Indication: Hypertension
     Dosage: 2.5 MG
     Route: 065

REACTIONS (1)
  - Acute coronary syndrome [Recovered/Resolved]

NARRATIVE: CASE EVENT DATE: 20220119
